FAERS Safety Report 24930190 (Version 2)
Quarter: 2025Q1

REPORT INFORMATION
  Report Type: Spontaneous
  Country: US (occurrence: US)
  Receive Date: 20250205
  Receipt Date: 20250328
  Transmission Date: 20250409
  Serious: Yes (Death)
  Sender: PFIZER
  Company Number: US-PFIZER INC-202500025916

PATIENT
  Age: 63 Year
  Sex: Female

DRUGS (1)
  1. TIVDAK [Suspect]
     Active Substance: TISOTUMAB VEDOTIN-TFTV

REACTIONS (1)
  - Death [Fatal]

NARRATIVE: CASE EVENT DATE: 20240209
